FAERS Safety Report 9475270 (Version 9)
Quarter: 2021Q4

REPORT INFORMATION
  Report Type: Other
  Country: CA (occurrence: None)
  Receive Date: 20130826
  Receipt Date: 20211125
  Transmission Date: 20220303
  Serious: Yes (Other)
  Sender: FDA-Public Use
  Company Number: CA-ROCHE-1266157

PATIENT
  Sex: Female

DRUGS (9)
  1. RITUXAN [Suspect]
     Active Substance: RITUXIMAB
     Indication: Rheumatoid arthritis
     Dosage: THE MOST RECENT RITUXIMAB DOSE ON 30/SEP/2016
     Route: 041
     Dates: start: 20100923, end: 20190214
  2. ACTEMRA [Suspect]
     Active Substance: TOCILIZUMAB
     Indication: Rheumatoid arthritis
     Route: 058
     Dates: start: 20211020
  3. DIPHENHYDRAMINE HYDROCHLORIDE [Concomitant]
     Active Substance: DIPHENHYDRAMINE HYDROCHLORIDE
     Indication: Premedication
     Route: 048
     Dates: start: 20100923
  4. ACETAMINOPHEN [Concomitant]
     Active Substance: ACETAMINOPHEN
     Indication: Premedication
     Route: 048
     Dates: start: 20100923, end: 20111020
  5. ACETAMINOPHEN [Concomitant]
     Active Substance: ACETAMINOPHEN
     Route: 048
     Dates: start: 20121114
  6. TYLENOL [Concomitant]
     Active Substance: ACETAMINOPHEN
  7. METHYLPREDNISOLONE [Concomitant]
     Active Substance: METHYLPREDNISOLONE
     Indication: Premedication
     Route: 042
     Dates: start: 20100923
  8. PREDNISONE [Concomitant]
     Active Substance: PREDNISONE
     Indication: Rheumatoid arthritis
     Dosage: 5-10 MG DAILY
  9. ACETAMINOPHEN\CODEINE PHOSPHATE [Concomitant]
     Active Substance: ACETAMINOPHEN\CODEINE PHOSPHATE

REACTIONS (12)
  - Blood cholesterol increased [Not Recovered/Not Resolved]
  - Cataract [Unknown]
  - Throat irritation [Recovered/Resolved]
  - Heart rate decreased [Unknown]
  - Hypotension [Unknown]
  - Infusion related reaction [Unknown]
  - Tooth disorder [Unknown]
  - Oxygen saturation decreased [Unknown]
  - Flushing [Recovered/Resolved]
  - Blood pressure systolic increased [Unknown]
  - Nasopharyngitis [Recovered/Resolved]
  - Blood pressure increased [Unknown]

NARRATIVE: CASE EVENT DATE: 20130101
